FAERS Safety Report 14700305 (Version 1)
Quarter: 2018Q1

REPORT INFORMATION
  Report Type: Spontaneous
  Country: US (occurrence: US)
  Receive Date: 20180330
  Receipt Date: 20180330
  Transmission Date: 20180509
  Serious: Yes (Hospitalization)
  Sender: FDA-Public Use
  Company Number: US-MYLANLABS-2018M1019617

PATIENT
  Age: 67 Year
  Sex: Male

DRUGS (2)
  1. VANCOMYCIN [Suspect]
     Active Substance: VANCOMYCIN
     Indication: EVIDENCE BASED TREATMENT
     Dosage: INTRAVENOUS CATHETER
     Route: 042
  2. PIPERACILIN/TAZOBACTAM [Concomitant]
     Active Substance: PIPERACILLIN SODIUM\TAZOBACTAM SODIUM
     Indication: EVIDENCE BASED TREATMENT
     Dosage: INTRAVENOUS CATHETER
     Route: 042

REACTIONS (3)
  - Cellulitis [Recovered/Resolved]
  - Dermatitis [Recovered/Resolved]
  - Administration site extravasation [Recovered/Resolved]
